FAERS Safety Report 13812639 (Version 2)
Quarter: 2018Q4

REPORT INFORMATION
  Report Type: Report from Study
  Country: JP (occurrence: JP)
  Receive Date: 20170729
  Receipt Date: 20181002
  Transmission Date: 20190204
  Serious: Yes (Life-Threatening, Hospitalization, Other)
  Sender: FDA-Public Use
  Company Number: JP-AMGEN-JPNNI2017114982

PATIENT
  Age: 61 Year
  Sex: Female
  Weight: 68 kg

DRUGS (31)
  1. PERJETA [Suspect]
     Active Substance: PERTUZUMAB
     Dosage: 420 MG
     Route: 041
     Dates: start: 20160226, end: 20160226
  2. HERCEPTIN [Suspect]
     Active Substance: TRASTUZUMAB
     Dosage: 480 MG
     Route: 041
     Dates: start: 20160408, end: 20160408
  3. DOCETAXEL. [Suspect]
     Active Substance: DOCETAXEL
     Dosage: 132 MG
     Route: 041
     Dates: start: 20160318, end: 20160318
  4. AMLODIPINE [Concomitant]
     Active Substance: AMLODIPINE BESYLATE
     Dosage: UNK
     Route: 048
  5. DOCETAXEL. [Suspect]
     Active Substance: DOCETAXEL
     Indication: BREAST CANCER STAGE IV
     Dosage: UNK
     Route: 041
  6. AMLODIPINE [Concomitant]
     Active Substance: AMLODIPINE BESYLATE
     Dosage: UNK
     Route: 048
  7. MAINTATE [Concomitant]
     Active Substance: BISOPROLOL FUMARATE
     Dosage: UNK
  8. PERJETA [Suspect]
     Active Substance: PERTUZUMAB
     Dosage: 420 MG
     Route: 041
     Dates: start: 20160408, end: 20160408
  9. AMLODIPINE [Concomitant]
     Active Substance: AMLODIPINE BESYLATE
     Indication: BREAST CANCER STAGE IV
     Dosage: UNK
     Route: 048
  10. MAINTATE [Concomitant]
     Active Substance: BISOPROLOL FUMARATE
     Dosage: UNK
     Route: 048
  11. SOL-MELCORT [Concomitant]
     Active Substance: METHYLPREDNISOLONE SODIUM SUCCINATE
     Dosage: UNK
     Route: 065
  12. HERCEPTIN [Suspect]
     Active Substance: TRASTUZUMAB
     Dosage: 480 MG
     Route: 041
     Dates: start: 20160226, end: 20160226
  13. LIXIANA [Concomitant]
     Active Substance: EDOXABAN TOSYLATE
     Dosage: UNK
     Route: 048
  14. PERJETA [Suspect]
     Active Substance: PERTUZUMAB
     Dosage: 420 MG
     Route: 041
     Dates: start: 20160318, end: 20160318
  15. LIXIANA [Concomitant]
     Active Substance: EDOXABAN TOSYLATE
     Dosage: UNK
  16. MAINTATE [Concomitant]
     Active Substance: BISOPROLOL FUMARATE
     Dosage: UNK
     Route: 048
  17. SOL-MELCORT [Concomitant]
     Active Substance: METHYLPREDNISOLONE SODIUM SUCCINATE
     Dosage: UNK
     Route: 065
  18. PEGFILGRASTIM [Suspect]
     Active Substance: PEGFILGRASTIM
     Indication: COLONY STIMULATING FACTOR THERAPY
     Dosage: 3.6 MG, UNK
     Route: 058
     Dates: start: 20160229, end: 20160229
  19. PEGFILGRASTIM [Suspect]
     Active Substance: PEGFILGRASTIM
     Dosage: 3.6 MG, UNK
     Route: 058
     Dates: start: 20160319, end: 20160319
  20. PEGFILGRASTIM [Suspect]
     Active Substance: PEGFILGRASTIM
     Dosage: 3.6 MG, UNK
     Route: 058
     Dates: start: 20160411, end: 20160411
  21. HERCEPTIN [Suspect]
     Active Substance: TRASTUZUMAB
     Indication: BREAST CANCER STAGE IV
     Dosage: UNK
     Route: 041
  22. DOCETAXEL. [Suspect]
     Active Substance: DOCETAXEL
     Dosage: 132 MG
     Route: 041
     Dates: start: 20160408, end: 20160408
  23. LIXIANA [Concomitant]
     Active Substance: EDOXABAN TOSYLATE
     Indication: BREAST CANCER STAGE IV
     Dosage: UNK
     Route: 048
  24. SOL-MELCORT [Concomitant]
     Active Substance: METHYLPREDNISOLONE SODIUM SUCCINATE
     Indication: BREAST CANCER
     Dosage: UNK
     Route: 065
  25. PERJETA [Suspect]
     Active Substance: PERTUZUMAB
     Indication: BREAST CANCER STAGE IV
     Dosage: UNK
     Route: 041
  26. HERCEPTIN [Suspect]
     Active Substance: TRASTUZUMAB
     Dosage: 480 MG
     Route: 041
     Dates: start: 20160318, end: 20160318
  27. DOCETAXEL. [Suspect]
     Active Substance: DOCETAXEL
     Dosage: 132 MG
     Route: 041
     Dates: start: 20160226, end: 20160226
  28. LIXIANA [Concomitant]
     Active Substance: EDOXABAN TOSYLATE
     Dosage: UNK
     Route: 048
  29. AMLODIPINE [Concomitant]
     Active Substance: AMLODIPINE BESYLATE
     Dosage: UNK
     Route: 048
  30. MAINTATE [Concomitant]
     Active Substance: BISOPROLOL FUMARATE
     Indication: BREAST CANCER STAGE IV
     Dosage: UNK
     Route: 048
  31. SOL-MELCORT [Concomitant]
     Active Substance: METHYLPREDNISOLONE SODIUM SUCCINATE
     Dosage: UNK
     Route: 065

REACTIONS (2)
  - Febrile neutropenia [Recovered/Resolved]
  - Interstitial lung disease [Recovered/Resolved]

NARRATIVE: CASE EVENT DATE: 20160304
